FAERS Safety Report 10219658 (Version 1)
Quarter: 2014Q2

REPORT INFORMATION
  Report Type: Spontaneous
  Country: US (occurrence: US)
  Receive Date: 20140605
  Receipt Date: 20140605
  Transmission Date: 20141212
  Serious: Yes (Death)
  Sender: FDA-Public Use
  Company Number: US-PFIZER INC-2014152001

PATIENT
  Age: 66 Year
  Sex: Female

DRUGS (2)
  1. SUTENT [Suspect]
     Indication: PANCREATIC CARCINOMA
     Dosage: 25 MG, DAILY
     Route: 048
     Dates: start: 20140220
  2. SUTENT [Suspect]
     Indication: PROSTATE CANCER

REACTIONS (1)
  - Death [Fatal]
